FAERS Safety Report 16324761 (Version 1)
Quarter: 2019Q2

REPORT INFORMATION
  Report Type: Spontaneous
  Country: US (occurrence: US)
  Receive Date: 20190411
  Receipt Date: 20190411
  Transmission Date: 20190711
  Serious: No
  Sender: FDA-Public Use
  Company Number: None

PATIENT
  Age: 34 Year
  Sex: Female

DRUGS (4)
  1. HYDROXYCHLOROQUINE [Concomitant]
     Active Substance: HYDROXYCHLOROQUINE
  2. CARISOPRODOL. [Concomitant]
     Active Substance: CARISOPRODOL
  3. OXYCODONE [Concomitant]
     Active Substance: OXYCODONE
  4. ENBREL [Suspect]
     Active Substance: ETANERCEPT
     Dates: start: 201902

REACTIONS (4)
  - Poor quality product administered [None]
  - Product distribution issue [None]
  - Product storage error [None]
  - Product dose omission [None]

NARRATIVE: CASE EVENT DATE: 20190404
